FAERS Safety Report 4446354-1 (Version None)
Quarter: 2004Q3

REPORT INFORMATION
  Report Type: 
  Country: None (occurrence: None)
  Receive Date: 20040903
  Receipt Date: 20040819
  Transmission Date: 20050211
  Serious: Yes (Hospitalization)
  Sender: FDA-Public Use
  Company Number: 176807

PATIENT
  Age: 19 Year
  Sex: Male

DRUGS (1)
  1. AVONEX [Suspect]
     Indication: MULTIPLE SCLEROSIS
     Dosage: 30 MCG QW IM
     Route: 030
     Dates: start: 20030722

REACTIONS (4)
  - DIZZINESS [None]
  - MARKEDLY REDUCED DIETARY INTAKE [None]
  - OLIGODIPSIA [None]
  - VOMITING [None]
